FAERS Safety Report 18875259 (Version 1)
Quarter: 2021Q1

REPORT INFORMATION
  Report Type: Spontaneous
  Country: AU (occurrence: AU)
  Receive Date: 20210210
  Receipt Date: 20210210
  Transmission Date: 20210420
  Serious: Yes (Death)
  Sender: FDA-Public Use
  Company Number: AU-ASTRAZENECA-2021A035845

PATIENT

DRUGS (8)
  1. TRIMETHOPRIM. [Interacting]
     Active Substance: TRIMETHOPRIM
     Route: 065
  2. NEVIRAPINE. [Interacting]
     Active Substance: NEVIRAPINE
     Route: 065
  3. LSONIAZID [Interacting]
     Active Substance: ISONIAZID
     Route: 065
  4. SULFAMETHOXAZOLE [Interacting]
     Active Substance: SULFAMETHOXAZOLE
     Route: 065
  5. OMEPRAZOLE. [Suspect]
     Active Substance: OMEPRAZOLE
     Route: 048
  6. LAMIVUDINE. [Interacting]
     Active Substance: LAMIVUDINE
     Route: 065
  7. METOCLOPRAMIDE. [Interacting]
     Active Substance: METOCLOPRAMIDE
     Route: 065
  8. TENOFOVIR (TENOFOVIR DISOPROXIL FUMARATE) [Interacting]
     Active Substance: TENOFOVIR DISOPROXIL FUMARATE
     Route: 065

REACTIONS (2)
  - Drug interaction [Fatal]
  - Hepatotoxicity [Fatal]
